FAERS Safety Report 12247664 (Version 2)
Quarter: 2016Q2

REPORT INFORMATION
  Report Type: Spontaneous
  Country: US (occurrence: US)
  Receive Date: 20160408
  Receipt Date: 20160620
  Transmission Date: 20160815
  Serious: No
  Sender: FDA-Public Use
  Company Number: US-ASTRAZENECA-2016SE34751

PATIENT
  Sex: Male
  Weight: 121.1 kg

DRUGS (12)
  1. FUROSEMIDE. [Concomitant]
     Active Substance: FUROSEMIDE
  2. CLONIDINE. [Concomitant]
     Active Substance: CLONIDINE
     Indication: BLOOD PRESSURE ABNORMAL
     Route: 048
  3. FLOMAX [Concomitant]
     Active Substance: TAMSULOSIN HYDROCHLORIDE
  4. SYMBICORT [Suspect]
     Active Substance: BUDESONIDE\FORMOTEROL FUMARATE DIHYDRATE
     Indication: EMPHYSEMA
     Dosage: 160/4.5 MCG ONE PUFF TWICE A DAY
     Route: 055
  5. REVACID [Concomitant]
     Dates: start: 2010
  6. HYZAR [Concomitant]
     Indication: BLOOD PRESSURE ABNORMAL
  7. METFORMIN [Concomitant]
     Active Substance: METFORMIN HYDROCHLORIDE
     Indication: DIABETES MELLITUS
  8. HUMULOG INSULIN [Concomitant]
     Indication: DIABETES MELLITUS
     Dates: start: 1986
  9. FLONASE [Concomitant]
     Active Substance: FLUTICASONE PROPIONATE
  10. SIMVASTATIN. [Concomitant]
     Active Substance: SIMVASTATIN
     Indication: PROPHYLAXIS
  11. SPIRIVA [Concomitant]
     Active Substance: TIOTROPIUM BROMIDE MONOHYDRATE
  12. LANSOPRAZOLE. [Concomitant]
     Active Substance: LANSOPRAZOLE

REACTIONS (10)
  - Hyperthyroidism [Unknown]
  - Hypertension [Unknown]
  - Diabetes mellitus [Unknown]
  - Gastritis [Unknown]
  - Drug dose omission [Unknown]
  - Sleep apnoea syndrome [Unknown]
  - Device failure [Unknown]
  - Device malfunction [Unknown]
  - Gastrooesophageal reflux disease [Unknown]
  - Product use issue [Unknown]
